FAERS Safety Report 24305556 (Version 4)
Quarter: 2024Q4

REPORT INFORMATION
  Report Type: Spontaneous
  Country: JP (occurrence: JP)
  Receive Date: 20240911
  Receipt Date: 20241030
  Transmission Date: 20250115
  Serious: No
  Sender: AMGEN
  Company Number: JP-AMGEN-JPNSP2024176505

PATIENT

DRUGS (1)
  1. OTEZLA [Suspect]
     Active Substance: APREMILAST
     Indication: Psoriasis
     Dosage: 30 MILLIGRAM, BID (30 MG TWO TABLETS IN TWO DIVIDED DOSES)
     Route: 048

REACTIONS (2)
  - Treatment noncompliance [Unknown]
  - Psoriasis [Unknown]
